FAERS Safety Report 22072267 (Version 3)
Quarter: 2024Q1

REPORT INFORMATION
  Report Type: Spontaneous
  Country: US (occurrence: US)
  Receive Date: 20230308
  Receipt Date: 20240311
  Transmission Date: 20240409
  Serious: No
  Sender: FDA-Public Use
  Company Number: US-ELI_LILLY_AND_COMPANY-US202303003141

PATIENT
  Age: 59 Year
  Sex: Female

DRUGS (2)
  1. VERZENIO [Suspect]
     Active Substance: ABEMACICLIB
     Indication: Breast cancer female
     Dosage: 100 MG, BID
     Route: 048
     Dates: start: 20230223
  2. VERZENIO [Suspect]
     Active Substance: ABEMACICLIB
     Dosage: 100 MG, DAILY
     Route: 048

REACTIONS (3)
  - Nausea [Recovered/Resolved]
  - Diarrhoea [Unknown]
  - Fatigue [Unknown]
